FAERS Safety Report 9413085 (Version 2)
Quarter: 2013Q4

REPORT INFORMATION
  Report Type: Spontaneous
  Country: US (occurrence: None)
  Receive Date: 20130703
  Receipt Date: 20131002
  Transmission Date: 20140711
  Serious: Yes (Other)
  Sender: FDA-Public Use
  Company Number: JPI-P-025631

PATIENT
  Age: 35 Year
  Sex: Female
  Weight: 61.4 kg

DRUGS (5)
  1. XYREM [Suspect]
     Indication: NARCOLEPSY
     Dosage: 4.5 GM (2.25 GM,2 IN 1 D),ORAL
     Route: 048
     Dates: start: 20100113
  2. ARMODAFINIL [Concomitant]
  3. ESTRADIOL [Concomitant]
  4. VITAMIN B12 [Concomitant]
  5. DIVIGEL [Concomitant]

REACTIONS (16)
  - Ovarian cyst [None]
  - Procedural pain [None]
  - Ear infection [None]
  - Insomnia [None]
  - Urinary tract infection [None]
  - Pneumonia [None]
  - Somnolence [None]
  - Insomnia [None]
  - Abnormal dreams [None]
  - Vertigo [None]
  - Drug ineffective [None]
  - Poor quality sleep [None]
  - Initial insomnia [None]
  - Depression [None]
  - Ovarian remnant syndrome [None]
  - Pain [None]
